FAERS Safety Report 25030258 (Version 3)
Quarter: 2025Q3

REPORT INFORMATION
  Report Type: Spontaneous
  Country: JP (occurrence: JP)
  Receive Date: 20250303
  Receipt Date: 20250707
  Transmission Date: 20251021
  Serious: Yes (Death, Disabling, Other)
  Sender: AMGEN
  Company Number: JP-BEH-2025197338

PATIENT
  Age: 65 Year
  Sex: Male
  Weight: 40.8 kg

DRUGS (8)
  1. TAVNEOS [Suspect]
     Active Substance: AVACOPAN
     Indication: Pulmonary alveolar haemorrhage
     Dosage: 20 MG, TID
     Route: 048
     Dates: start: 20220623, end: 20221004
  2. PREDONINE [Concomitant]
     Active Substance: PREDNISOLONE
     Dosage: 5 MG, TID
     Route: 048
  3. VALGANCICLOVIR HYDROCHLORIDE [Concomitant]
     Active Substance: VALGANCICLOVIR HYDROCHLORIDE
     Dosage: 450 MG, BID
     Route: 048
  4. IMURAN [Concomitant]
     Active Substance: AZATHIOPRINE
     Dosage: 50 MG
     Route: 048
  5. PREDNISOLONE [Concomitant]
     Active Substance: PREDNISOLONE
     Dosage: 2 MG
     Route: 048
  6. VORICONAZOLE [Concomitant]
     Active Substance: VORICONAZOLE
     Dosage: 150 MG, BID
     Route: 048
  7. ALFACALCIDOL [Concomitant]
     Active Substance: ALFACALCIDOL
     Dosage: .5 MUG
     Route: 048
  8. PROGRAF [Concomitant]
     Active Substance: TACROLIMUS
     Dosage: .6 MG
     Route: 048

REACTIONS (6)
  - Pneumonia [Fatal]
  - Sepsis [Fatal]
  - Pneumonia aspiration [Fatal]
  - Cerebral infarction [Recovered/Resolved with Sequelae]
  - Deep vein thrombosis [Recovered/Resolved]
  - Off label use [Unknown]

NARRATIVE: CASE EVENT DATE: 20220809
